FAERS Safety Report 4786099-1 (Version None)
Quarter: 2005Q4

REPORT INFORMATION
  Report Type: 
  Country: None (occurrence: None)
  Receive Date: 20051003
  Receipt Date: 20051003
  Transmission Date: 20060501
  Serious: Yes (Other)
  Sender: FDA-Public Use
  Company Number: None

PATIENT
  Age: 72 Year
  Sex: Male
  Weight: 73.2 kg

DRUGS (7)
  1. SODIUM POLYSTYRINE SULFONATE     CAROLINA MEDICAL PRODUCTS [Suspect]
     Indication: HYPERKALAEMIA
     Dosage: 60ML X 1 PO
     Route: 048
     Dates: start: 20050710, end: 20050710
  2. VALPROIC ACID [Concomitant]
  3. CLARITIN [Concomitant]
  4. HEXAVITAMIN [Concomitant]
  5. FERROUS SULFATE TAB [Concomitant]
  6. DOCUSATE [Concomitant]
  7. RISPERDAL [Concomitant]

REACTIONS (1)
  - HYPOTHERMIA [None]
